FAERS Safety Report 8722433 (Version 8)
Quarter: 2018Q4

REPORT INFORMATION
  Report Type: Spontaneous
  Country: FR (occurrence: FR)
  Receive Date: 20120814
  Receipt Date: 20181108
  Transmission Date: 20190205
  Serious: Yes (Hospitalization, Other)
  Sender: FDA-Public Use
  Company Number: FR-PFIZER INC-2012192801

PATIENT
  Age: 80 Year
  Sex: Male
  Weight: 67 kg

DRUGS (6)
  1. TAHOR [Suspect]
     Active Substance: ATORVASTATIN CALCIUM
     Indication: DYSLIPIDAEMIA
     Dosage: 80 MG, QD
     Route: 048
     Dates: start: 20120105, end: 20120117
  2. PROZAC [Suspect]
     Active Substance: FLUOXETINE HYDROCHLORIDE
     Indication: DEPRESSION
     Dosage: 20 MG, QD
     Route: 048
     Dates: start: 20120111, end: 20120117
  3. TAREG [Concomitant]
     Active Substance: VALSARTAN
     Dosage: 80 MG ONCE A DAY
     Route: 048
     Dates: start: 2009
  4. LOVENOX [Suspect]
     Active Substance: ENOXAPARIN SODIUM
     Indication: PROPHYLAXIS
     Dosage: 4000 IU, QD
     Route: 058
     Dates: start: 20120102, end: 20120111
  5. EUPANTOL [Suspect]
     Active Substance: PANTOPRAZOLE SODIUM
     Indication: PROPHYLAXIS AGAINST GASTROINTESTINAL ULCER
     Dosage: 20 MG, QD
     Route: 048
     Dates: start: 20120103, end: 20120117
  6. KARDEGIC [Concomitant]
     Active Substance: ASPIRIN DL-LYSINE
     Dosage: 75 MG ONCE A DAY
     Route: 048
     Dates: start: 1997

REACTIONS (3)
  - Rash maculo-papular [Recovered/Resolved]
  - Leukocytosis [Unknown]
  - C-reactive protein increased [Unknown]

NARRATIVE: CASE EVENT DATE: 20120117
